FAERS Safety Report 6734701-7 (Version None)
Quarter: 2010Q2

REPORT INFORMATION
  Report Type: 
  Country: None (occurrence: None)
  Receive Date: 20100519
  Receipt Date: 20100519
  Transmission Date: 20101027
  Serious: Yes (Disabling)
  Sender: FDA-Public Use
  Company Number: None

PATIENT
  Age: 18 Year
  Sex: Male
  Weight: 90.5 kg

DRUGS (1)
  1. CEFAZOLIN [Suspect]
     Indication: PROPHYLAXIS
     Dosage: 1GM Q8H IV, 2 DOSES
     Route: 042
     Dates: start: 20100505, end: 20100505

REACTIONS (3)
  - LARYNGOSPASM [None]
  - LIP SWELLING [None]
  - RESPIRATORY DISTRESS [None]
